FAERS Safety Report 16639290 (Version 1)
Quarter: 2019Q3

REPORT INFORMATION
  Report Type: Other
  Country: US (occurrence: US)
  Receive Date: 20190726
  Receipt Date: 20190726
  Transmission Date: 20191004
  Serious: Yes (Other)
  Sender: FDA-Public Use
  Company Number: US-BIOVITRUM-2019US2078

PATIENT
  Sex: Female

DRUGS (1)
  1. KINERET [Suspect]
     Active Substance: ANAKINRA
     Route: 058
     Dates: start: 20190214

REACTIONS (5)
  - Pericarditis [Unknown]
  - Ill-defined disorder [Unknown]
  - Inflammation [Unknown]
  - Drug ineffective [Unknown]
  - Feeling abnormal [Unknown]
